FAERS Safety Report 7402117-6 (Version None)
Quarter: 2011Q1

REPORT INFORMATION
  Report Type: 
  Country: None (occurrence: None)
  Receive Date: 20110331
  Receipt Date: 20110311
  Transmission Date: 20110831
  Serious: Yes (Other)
  Sender: FDA-Public Use
  Company Number: 0217197

PATIENT
  Age: 30 Year
  Sex: Female

DRUGS (1)
  1. TACHOSIL [Suspect]
     Indication: HAEMOSTASIS
     Dates: start: 20081101

REACTIONS (4)
  - DRUG EXPOSURE DURING PREGNANCY [None]
  - MEDICATION RESIDUE [None]
  - PREGNANCY [None]
  - CAESAREAN SECTION [None]
